FAERS Safety Report 7459388-X (Version None)
Quarter: 2011Q2

REPORT INFORMATION
  Report Type: 
  Country: None (occurrence: None)
  Receive Date: 20110505
  Receipt Date: 20110427
  Transmission Date: 20111010
  Serious: Yes (Hospitalization)
  Sender: FDA-Public Use
  Company Number: US-ABBOTT-11P-163-0721975-00

PATIENT
  Sex: Female
  Weight: 90.346 kg

DRUGS (5)
  1. SULFASALAZINE [Suspect]
     Indication: RHEUMATOID ARTHRITIS
     Dates: start: 20110101, end: 20110201
  2. SYNTHROID [Concomitant]
     Indication: HYPOTHYROIDISM
  3. HUMIRA [Suspect]
     Indication: RHEUMATOID ARTHRITIS
     Route: 058
     Dates: start: 20110101, end: 20110418
  4. PROZAC [Concomitant]
     Indication: DEPRESSION
  5. CLOBETASOL PROPIONATE [Concomitant]
     Indication: LICHEN SCLEROSUS
     Route: 061

REACTIONS (7)
  - MUSCLE CONTRACTURE [None]
  - PYREXIA [None]
  - GENERALISED OEDEMA [None]
  - MUSCLE TIGHTNESS [None]
  - JOINT STIFFNESS [None]
  - ABASIA [None]
  - JOINT RANGE OF MOTION DECREASED [None]
